FAERS Safety Report 12686724 (Version 1)
Quarter: 2016Q3

REPORT INFORMATION
  Report Type: Spontaneous
  Country: US (occurrence: US)
  Receive Date: 20160825
  Receipt Date: 20160825
  Transmission Date: 20161109
  Serious: No
  Sender: FDA-Public Use
  Company Number: US-JAZZ-JPI-P-029296

PATIENT
  Sex: Female

DRUGS (3)
  1. XYREM [Suspect]
     Active Substance: SODIUM OXYBATE
     Dosage: 4.5 G, BID
     Route: 048
     Dates: start: 20080625
  2. XYREM [Suspect]
     Active Substance: SODIUM OXYBATE
     Indication: SLEEP DISORDER
     Dosage: 3 G, BID
     Route: 048
     Dates: start: 20070611
  3. XYREM [Suspect]
     Active Substance: SODIUM OXYBATE
     Dosage: UNKNOWN SINGLE
     Route: 048
     Dates: end: 20080624

REACTIONS (6)
  - Heart rate increased [Not Recovered/Not Resolved]
  - Headache [Recovered/Resolved]
  - Dyspnoea [Unknown]
  - Dizziness [Recovered/Resolved]
  - Productive cough [Recovered/Resolved]
  - Helicobacter infection [Unknown]

NARRATIVE: CASE EVENT DATE: 2014
